FAERS Safety Report 12272866 (Version 2)
Quarter: 2016Q2

REPORT INFORMATION
  Report Type: Spontaneous
  Country: IT (occurrence: IT)
  Receive Date: 20160415
  Receipt Date: 20160428
  Transmission Date: 20160815
  Serious: Yes (Death, Hospitalization, Other)
  Sender: FDA-Public Use
  Company Number: IT-GILEAD-2016-0208811

PATIENT
  Age: 69 Year
  Sex: Male
  Weight: 85 kg

DRUGS (8)
  1. MYCOSTATIN [Concomitant]
     Active Substance: NYSTATIN
     Dosage: 2 DF, UNK
     Route: 048
  2. FUROSEMIDE. [Concomitant]
     Active Substance: FUROSEMIDE
     Dosage: 25 MG, UNK
     Route: 048
  3. PLAVIX [Concomitant]
     Active Substance: CLOPIDOGREL BISULFATE
     Indication: THROMBOSIS PROPHYLAXIS
     Dosage: 75 MG, UNK
     Route: 048
  4. CERTICAN [Concomitant]
     Active Substance: EVEROLIMUS
     Indication: LIVER TRANSPLANT
     Dosage: 0.25 MG, UNK
     Route: 065
  5. HARVONI [Suspect]
     Active Substance: LEDIPASVIR\SOFOSBUVIR
     Indication: HEPATITIS C
     Dosage: 1 DF, UNK
     Route: 048
     Dates: start: 20160107, end: 20160303
  6. ZANTAC [Concomitant]
     Active Substance: RANITIDINE HYDROCHLORIDE
     Dosage: 300 MG, UNK
     Route: 048
  7. TRIATEC                            /00116401/ [Concomitant]
     Active Substance: ACETAMINOPHEN\CODEINE PHOSPHATE
     Dosage: 5 MG, UNK
     Route: 048
  8. DILATREND [Concomitant]
     Active Substance: CARVEDILOL
     Dosage: 6.25 MG, UNK
     Route: 048

REACTIONS (5)
  - Dyspnoea [Fatal]
  - Chest pain [Fatal]
  - Respiratory failure [Fatal]
  - Acute myocardial infarction [Fatal]
  - Tachycardia [Fatal]

NARRATIVE: CASE EVENT DATE: 20160217
